FAERS Safety Report 9893618 (Version 14)
Quarter: 2015Q2

REPORT INFORMATION
  Report Type: Spontaneous
  Country: US (occurrence: US)
  Receive Date: 20140213
  Receipt Date: 20150629
  Transmission Date: 20150821
  Serious: Yes (Hospitalization, Other)
  Sender: FDA-Public Use
  Company Number: PHEH2014US002759

PATIENT
  Sex: Female
  Weight: 57 kg

DRUGS (16)
  1. ALBUTEROL. [Suspect]
     Active Substance: ALBUTEROL
     Indication: PRODUCT USED FOR UNKNOWN INDICATION
     Route: 065
  2. ZOMETA [Suspect]
     Active Substance: ZOLEDRONIC ACID
     Dosage: 4 MG, QMO
     Route: 042
     Dates: start: 2005, end: 201110
  3. ZOMETA [Suspect]
     Active Substance: ZOLEDRONIC ACID
     Dosage: UNK
     Route: 065
     Dates: end: 2012
  4. ADVAIR DISKUS [Concomitant]
     Active Substance: FLUTICASONE PROPIONATE\SALMETEROL XINAFOATE
     Indication: PRODUCT USED FOR UNKNOWN INDICATION
     Dosage: 100.50 MG, UNK
     Route: 055
  5. ATROVENT [Concomitant]
     Active Substance: IPRATROPIUM BROMIDE
     Indication: PRODUCT USED FOR UNKNOWN INDICATION
     Route: 065
  6. ZOLADEX [Concomitant]
     Active Substance: GOSERELIN ACETATE
     Indication: PRODUCT USED FOR UNKNOWN INDICATION
     Dosage: 10.8 MG, 2 DOSES IN 3 MONTHS
     Route: 065
  7. ZOMETA [Suspect]
     Active Substance: ZOLEDRONIC ACID
     Indication: BREAST CANCER
     Dosage: UNK
     Route: 041
     Dates: start: 2003
  8. EXCEDRIN MIGRAINE [Concomitant]
     Active Substance: ACETAMINOPHEN\ASPIRIN\CAFFEINE
     Indication: PRODUCT USED FOR UNKNOWN INDICATION
     Route: 065
  9. LUPRON [Concomitant]
     Active Substance: LEUPROLIDE ACETATE
     Indication: PRODUCT USED FOR UNKNOWN INDICATION
     Dosage: 22.5 MG, Q3MO
     Route: 030
     Dates: start: 2005, end: 201003
  10. LEXAPRO [Concomitant]
     Active Substance: ESCITALOPRAM OXALATE
     Indication: PRODUCT USED FOR UNKNOWN INDICATION
     Route: 065
  11. NASONEX [Concomitant]
     Active Substance: MOMETASONE FUROATE
     Indication: PRODUCT USED FOR UNKNOWN INDICATION
     Route: 065
  12. ALEVE [Concomitant]
     Active Substance: NAPROXEN SODIUM
     Indication: PRODUCT USED FOR UNKNOWN INDICATION
     Route: 065
  13. ROBITUSSIN D [Concomitant]
     Indication: PRODUCT USED FOR UNKNOWN INDICATION
     Dosage: UNK
     Route: 065
  14. FEMARA [Concomitant]
     Active Substance: LETROZOLE
     Indication: PRODUCT USED FOR UNKNOWN INDICATION
     Route: 065
  15. SINGULAIR [Concomitant]
     Active Substance: MONTELUKAST SODIUM
     Indication: PRODUCT USED FOR UNKNOWN INDICATION
     Dosage: 10 MG
     Route: 048
  16. KLONOPIN [Concomitant]
     Active Substance: CLONAZEPAM
     Indication: PRODUCT USED FOR UNKNOWN INDICATION
     Dosage: 0.25 MG, UNK
     Route: 065

REACTIONS (169)
  - Ocular discomfort [Unknown]
  - Metastases to liver [Unknown]
  - Metastases to central nervous system [Unknown]
  - Upper-airway cough syndrome [Unknown]
  - Lung consolidation [Unknown]
  - Dyskinesia [Unknown]
  - Circulatory collapse [Unknown]
  - Medical device discomfort [Unknown]
  - Milia [Unknown]
  - Throat tightness [Unknown]
  - Pruritus [Unknown]
  - Contusion [Unknown]
  - Nausea [Unknown]
  - Musculoskeletal stiffness [Unknown]
  - Laryngospasm [Unknown]
  - Injury [Unknown]
  - Metastases to lung [Unknown]
  - Depression [Unknown]
  - Bronchial hyperreactivity [Unknown]
  - Irritable bowel syndrome [Unknown]
  - Tachycardia [Unknown]
  - Tremor [Unknown]
  - Claustrophobia [Unknown]
  - Dyspareunia [Unknown]
  - Palpitations [Unknown]
  - Stomatitis [Unknown]
  - Rheumatoid arthritis [Unknown]
  - Adrenomegaly [Unknown]
  - Oral disorder [Unknown]
  - Vaginal discharge [Unknown]
  - Pharyngitis [Unknown]
  - Post procedural discomfort [Unknown]
  - Joint swelling [Unknown]
  - Flank pain [Unknown]
  - Hypoaesthesia oral [Unknown]
  - Vomiting [Unknown]
  - Panic attack [Unknown]
  - Productive cough [Unknown]
  - Ear infection [Unknown]
  - Ear pruritus [Unknown]
  - Upper respiratory tract infection [Unknown]
  - Haematuria [Unknown]
  - Muscle injury [Unknown]
  - Sinus congestion [Unknown]
  - Hydronephrosis [Unknown]
  - Stress [Unknown]
  - Phlebolith [Unknown]
  - Herpes simplex [Unknown]
  - Insomnia [Unknown]
  - Hyperventilation [Unknown]
  - Exostosis [Unknown]
  - Vulvovaginal dryness [Unknown]
  - Primary sequestrum [Unknown]
  - Spinal osteoarthritis [Unknown]
  - Pulmonary embolism [Unknown]
  - Alopecia [Unknown]
  - Constipation [Unknown]
  - Dysphagia [Unknown]
  - Muscle tightness [Unknown]
  - Pain [Unknown]
  - Nephrocalcinosis [Unknown]
  - Vulvovaginal burning sensation [Unknown]
  - Thrombophlebitis [Unknown]
  - Oral candidiasis [Unknown]
  - Chronic obstructive pulmonary disease [Unknown]
  - Metastases to bone [Unknown]
  - Genital herpes [Unknown]
  - Lymphoedema [Unknown]
  - Pancreatic duct dilatation [Unknown]
  - Toothache [Unknown]
  - Seborrhoeic keratosis [Unknown]
  - Musculoskeletal chest pain [Unknown]
  - Paraesthesia [Unknown]
  - Fatigue [Unknown]
  - Anaemia [Unknown]
  - Dyspepsia [Unknown]
  - Hypoaesthesia [Unknown]
  - Bone pain [Unknown]
  - Chills [Unknown]
  - Hot flush [Unknown]
  - Choking sensation [Unknown]
  - Osteonecrosis of jaw [Unknown]
  - Deformity [Unknown]
  - Emotional distress [Unknown]
  - Asthma [Not Recovered/Not Resolved]
  - Breast cancer metastatic [Unknown]
  - Migraine [Unknown]
  - Wrist fracture [Unknown]
  - Osteoporosis [Unknown]
  - Ovarian disorder [Unknown]
  - Nasal discharge discolouration [Unknown]
  - Fracture displacement [Unknown]
  - Rotator cuff syndrome [Unknown]
  - Diverticulum intestinal [Unknown]
  - Muscle spasms [Unknown]
  - Chest discomfort [Unknown]
  - Headache [Unknown]
  - Dizziness [Unknown]
  - Rash [Unknown]
  - Scar [Unknown]
  - Arthralgia [Unknown]
  - Intervertebral disc degeneration [Unknown]
  - Dyspnoea [Unknown]
  - Bronchitis viral [Unknown]
  - Exposed bone in jaw [Unknown]
  - Physical disability [Unknown]
  - Lung disorder [Unknown]
  - Cystitis [Unknown]
  - Rhinitis allergic [Unknown]
  - Pleural effusion [Unknown]
  - Ovarian cyst [Unknown]
  - Fall [Unknown]
  - Adjustment disorder [Unknown]
  - Urinary incontinence [Unknown]
  - Endometrial hypoplasia [Unknown]
  - Rib fracture [Unknown]
  - Spondylolisthesis [Unknown]
  - Conjunctivitis allergic [Unknown]
  - Nephrolithiasis [Unknown]
  - Obstructive uropathy [Unknown]
  - Lentigo [Unknown]
  - Chest pain [Unknown]
  - Decreased appetite [Unknown]
  - Neck pain [Unknown]
  - Back pain [Unknown]
  - Night sweats [Unknown]
  - Dyspnoea exertional [Unknown]
  - Macrosomia [Unknown]
  - Conversion disorder [Unknown]
  - Sensation of foreign body [Unknown]
  - Anxiety [Unknown]
  - Wheezing [Unknown]
  - Calculus ureteric [Unknown]
  - Stress urinary incontinence [Unknown]
  - Osteoarthritis [Unknown]
  - Metaplasia [Unknown]
  - Exostosis of jaw [Unknown]
  - Pertussis [Unknown]
  - Viral upper respiratory tract infection [Unknown]
  - Renal disorder [Unknown]
  - Osteoarthropathy [Unknown]
  - Spondylitis [Unknown]
  - Dysuria [Unknown]
  - Joint injury [Unknown]
  - Photodermatosis [Unknown]
  - Diarrhoea [Unknown]
  - Dysphonia [Unknown]
  - Eye swelling [Unknown]
  - Weight increased [Unknown]
  - Ear pain [Unknown]
  - Hiatus hernia [Unknown]
  - Infection [Unknown]
  - Colitis ulcerative [Unknown]
  - Vaginal haemorrhage [Unknown]
  - Tendonitis [Unknown]
  - Seasonal allergy [Unknown]
  - Metastases to spine [Unknown]
  - Intervertebral disc space narrowing [Unknown]
  - Rhinorrhoea [Unknown]
  - Osteosclerosis [Unknown]
  - Arthrofibrosis [Unknown]
  - Abdominal pain upper [Unknown]
  - Musculoskeletal pain [Unknown]
  - Muscle strain [Unknown]
  - Cough [Unknown]
  - Skeletal injury [Unknown]
  - Lung hyperinflation [Unknown]
  - Radius fracture [Unknown]
  - Faecal incontinence [Unknown]
